FAERS Safety Report 5836307-0 (Version None)
Quarter: 2008Q3

REPORT INFORMATION
  Report Type: 
  Country: None (occurrence: None)
  Receive Date: 20080807
  Receipt Date: 20080801
  Transmission Date: 20090109
  Serious: Yes (Other)
  Sender: FDA-Public Use
  Company Number: US-JNJFOC-20080403698

PATIENT
  Age: 83 Year
  Sex: Female
  Weight: 72.58 kg

DRUGS (12)
  1. TYLENOL (CAPLET) [Suspect]
     Route: 048
  2. TYLENOL (CAPLET) [Suspect]
     Indication: SPONDYLITIS
     Route: 048
  3. FEXOFENADINE [Concomitant]
  4. WARFARIN SODIUM [Concomitant]
     Indication: FACTOR V LEIDEN MUTATION
     Dosage: 4 MG, 1 A DAY FOR 5 DAYS, 5 MG  1 A DAY FOR 2 DAYS
  5. ASPIRIN [Concomitant]
     Indication: CARDIAC DISORDER
  6. REQUIP [Concomitant]
     Indication: RESTLESS LEGS SYNDROME
  7. DOXEPIN HCL [Concomitant]
  8. NEXIUM [Concomitant]
     Indication: GASTROOESOPHAGEAL REFLUX DISEASE
  9. HYDROCHLOROTHIAZIDE [Concomitant]
  10. PRAVASTATIN [Concomitant]
  11. ALTACE [Concomitant]
  12. COZAAR [Concomitant]

REACTIONS (3)
  - CEREBROVASCULAR ACCIDENT [None]
  - DIZZINESS [None]
  - INCORRECT DRUG ADMINISTRATION DURATION [None]
